FAERS Safety Report 22850049 (Version 2)
Quarter: 2024Q3

REPORT INFORMATION
  Report Type: Spontaneous
  Country: US (occurrence: None)
  Receive Date: 20230822
  Receipt Date: 20240823
  Transmission Date: 20241017
  Serious: No
  Sender: EMMAUS LIFE SCIENCES
  Company Number: US-Emmaus Medical, Inc.-EMM202306-000132

PATIENT
  Age: 9 Year
  Sex: Female

DRUGS (2)
  1. ENDARI [Suspect]
     Active Substance: GLUTAMINE
     Indication: Sickle cell disease
     Dosage: 5 G
     Route: 048
     Dates: start: 202305
  2. ENDARI [Suspect]
     Active Substance: GLUTAMINE
     Dosage: 5 G
     Route: 048
     Dates: start: 202305

REACTIONS (6)
  - Nocturia [Recovered/Resolved]
  - Enuresis [Recovered/Resolved]
  - Pain [Unknown]
  - Inappropriate schedule of product administration [Unknown]
  - Product dose omission issue [Unknown]
  - Product availability issue [Unknown]

NARRATIVE: CASE EVENT DATE: 20230101
